FAERS Safety Report 6563220-6 (Version None)
Quarter: 2010Q1

REPORT INFORMATION
  Report Type: 
  Country: None (occurrence: None)
  Receive Date: 20100130
  Receipt Date: 20091207
  Transmission Date: 20100710
  Serious: No
  Sender: FDA-Public Use
  Company Number: US-ABBOTT-09P-163-0613178-00

PATIENT
  Sex: Female
  Weight: 74.91 kg

DRUGS (5)
  1. HUMIRA [Suspect]
     Indication: PSORIATIC ARTHROPATHY
     Route: 058
     Dates: start: 20080101, end: 20090401
  2. HUMIRA [Suspect]
     Route: 058
     Dates: start: 20090401, end: 20090901
  3. HUMIRA [Suspect]
     Dates: start: 20091001
  4. HUMIRA [Suspect]
     Route: 058
  5. ALLEGRA [Concomitant]
     Indication: SEASONAL ALLERGY
     Route: 048

REACTIONS (5)
  - BRONCHITIS [None]
  - CHEST PAIN [None]
  - COUGH [None]
  - NO THERAPEUTIC RESPONSE [None]
  - RIB FRACTURE [None]
